FAERS Safety Report 25322541 (Version 1)
Quarter: 2025Q2

REPORT INFORMATION
  Report Type: Spontaneous
  Country: US (occurrence: US)
  Receive Date: 20250516
  Receipt Date: 20250516
  Transmission Date: 20250716
  Serious: Yes (Death, Hospitalization, Other)
  Sender: AMGEN
  Company Number: US-AMGEN-USASP2025094157

PATIENT

DRUGS (2)
  1. PREDNISONE [Suspect]
     Active Substance: PREDNISONE
     Indication: B-cell lymphoma
     Route: 065
  2. RITUXIMAB [Suspect]
     Active Substance: RITUXIMAB
     Indication: B-cell lymphoma
     Route: 065

REACTIONS (22)
  - Death [Fatal]
  - Non-Hodgkin^s lymphoma [Fatal]
  - Febrile neutropenia [Unknown]
  - Mucosal inflammation [Unknown]
  - Embolism venous [Unknown]
  - Bacteraemia [Unknown]
  - Unevaluable event [Unknown]
  - Mental disorder [Unknown]
  - Small intestinal obstruction [Unknown]
  - B-cell lymphoma [Unknown]
  - B-cell lymphoma recurrent [Unknown]
  - Cardiac failure [Unknown]
  - Thrombosis [Unknown]
  - Renal impairment [Unknown]
  - Bacterial sepsis [Unknown]
  - Neoplasm malignant [Unknown]
  - Neuropathy peripheral [Unknown]
  - Toxicity to various agents [Unknown]
  - Fungal infection [Unknown]
  - Depression [Unknown]
  - Anxiety [Unknown]
  - Therapy partial responder [Unknown]
